FAERS Safety Report 6998798-1 (Version None)
Quarter: 2010Q3

REPORT INFORMATION
  Report Type: 
  Country: None (occurrence: None)
  Receive Date: 20100920
  Receipt Date: 20100907
  Transmission Date: 20110219
  Serious: Yes (Hospitalization, Other)
  Sender: FDA-Public Use
  Company Number: US-ELI_LILLY_AND_COMPANY-US201006002957

PATIENT
  Sex: Female
  Weight: 43.991 kg

DRUGS (9)
  1. FORTEO [Suspect]
     Indication: OSTEOPOROSIS
     Dosage: 20 UG, DAILY (1/D)
  2. LISINOPRIL [Concomitant]
     Dosage: 10 MG, 2/D
     Route: 048
  3. METOPROLOL [Concomitant]
     Dosage: 25 MG, 2/D
     Route: 048
  4. IRON [Concomitant]
     Dosage: UNK, DAILY (1/D)
     Route: 048
  5. COUMADIN [Concomitant]
  6. ASPIRIN [Concomitant]
     Dosage: 81 MG, DAILY (1/D)
  7. CALCIUM [Concomitant]
  8. PROTONIX [Concomitant]
     Dosage: 40 MG, DAILY (1/D)
     Route: 048
  9. LORTAB [Concomitant]
     Dosage: 7.5 MG, AS NEEDED
     Route: 048

REACTIONS (16)
  - ANAEMIA [None]
  - ARTERIOSCLEROSIS [None]
  - ATRIAL FIBRILLATION [None]
  - DYSARTHRIA [None]
  - ELECTROCARDIOGRAM ST SEGMENT DEPRESSION [None]
  - GAIT DISTURBANCE [None]
  - HIATUS HERNIA [None]
  - HYPERCALCAEMIA [None]
  - HYPOKALAEMIA [None]
  - HYPOMAGNESAEMIA [None]
  - HYPOVITAMINOSIS [None]
  - NAUSEA [None]
  - RENAL ANEURYSM [None]
  - THYROID ADENOMA [None]
  - UNRESPONSIVE TO STIMULI [None]
  - WEIGHT DECREASED [None]
